FAERS Safety Report 18600191 (Version 1)
Quarter: 2020Q4

REPORT INFORMATION
  Report Type: Report from Study
  Country: CA (occurrence: CA)
  Receive Date: 20201210
  Receipt Date: 20201210
  Transmission Date: 20210114
  Serious: Yes (Death, Other)
  Sender: FDA-Public Use
  Company Number: CA-MYLANLABS-2020M1087044

PATIENT
  Sex: Female

DRUGS (1)
  1. CLOZAPINE. [Suspect]
     Active Substance: CLOZAPINE
     Indication: SCHIZOPHRENIA
     Dosage: 250 MILLIGRAM
     Dates: start: 199811

REACTIONS (4)
  - Cardiac failure congestive [Unknown]
  - Cardiac arrest [Fatal]
  - Pneumonia [Unknown]
  - Acute myocardial infarction [Unknown]
